FAERS Safety Report 10934541 (Version 3)
Quarter: 2015Q3

REPORT INFORMATION
  Report Type: Spontaneous
  Country: US (occurrence: US)
  Receive Date: 20150320
  Receipt Date: 20150824
  Transmission Date: 20151125
  Serious: Yes (Death, Hospitalization, Other)
  Sender: FDA-Public Use
  Company Number: US-PFIZER INC-2015096113

PATIENT
  Age: 55 Year
  Sex: Female
  Weight: 61 kg

DRUGS (22)
  1. POTASSIUM CHLORIDE. [Concomitant]
     Active Substance: POTASSIUM CHLORIDE
     Dosage: 10 MEQ, 2X/DAY
     Route: 048
  2. BIOTIN [Concomitant]
     Active Substance: BIOTIN
     Dosage: 5000 ?G, DAILY
     Route: 048
  3. HYDROCODONE/HOMATROPINE [Concomitant]
     Active Substance: HOMATROPINE METHYLBROMIDE\HYDROCODONE BITARTRATE
     Indication: COUGH
     Dosage: UNK, AS NEEDED (5-1.5 MG 1 TEASPOON BY MOUTH EVERY 4-6 HOURS AS NEEDED FOR COUGH)
     Route: 048
  4. OXYCODONE AND ACETAMINOPHEN [Concomitant]
     Active Substance: ACETAMINOPHEN\OXYCODONE\OXYCODONE HYDROCHLORIDE
     Dosage: UNK, 4X/DAY, (5-325 MG , 1 TABLETS BY MOUTH EVERY 6 HOURS)
     Route: 048
  5. BIMATOPROST. [Concomitant]
     Active Substance: BIMATOPROST
     Dosage: 1 GTT, 1X/DAY, (1 DROP IN EACH EYE AT BEDTIME)
  6. METOPROLOL SUCCINATE. [Concomitant]
     Active Substance: METOPROLOL SUCCINATE
     Dosage: 25 MG, 2X/DAY
     Route: 048
  7. GENOTROPIN MQ [Suspect]
     Active Substance: SOMATROPIN
     Indication: DWARFISM
     Dosage: 0.2 MG, 7 DAYS PER WEEK
     Route: 058
     Dates: start: 200903
  8. DDAVP [Concomitant]
     Active Substance: DESMOPRESSIN ACETATE
     Dosage: 0.01 %, UNK
     Route: 045
  9. METOPROLOL TARTRATE. [Concomitant]
     Active Substance: METOPROLOL TARTRATE
     Dosage: UNK
  10. FENTANYL. [Concomitant]
     Active Substance: FENTANYL
     Dosage: UNK
  11. CALCIUM 600+VIT D [Concomitant]
     Dosage: 1 DF, 3X/DAY, (600-125 MG, WITH MEALS)
     Route: 048
  12. LEVOTHYROXINE. [Concomitant]
     Active Substance: LEVOTHYROXINE
     Dosage: 50 ?G, UNK 1 TABLET MOUTH EVERY DAY AND AN EXTRA TABLET ON SUNDAYS)
     Route: 048
  13. ASPIRIN /00002701/ [Concomitant]
     Active Substance: ASPIRIN
     Dosage: 81 MG, DAILY, (WITH DINNER)
     Route: 048
  14. FLUTICASONE [Concomitant]
     Active Substance: FLUTICASONE\FLUTICASONE PROPIONATE
     Dosage: UNK, 1X/DAY, (50 MCG/ACT, 1 SPRAY IN EACH NOSTRIL AT BEDTIME)
     Route: 045
  15. DESMOPRESSIN ACETATE. [Concomitant]
     Active Substance: DESMOPRESSIN ACETATE
     Dosage: 1 DF, 2X/DAY (1 SPRAY IN EACH NOSTRIL)
     Route: 045
  16. ATROPINE W/DIPHENOXYLATE [Concomitant]
     Active Substance: ATROPINE\DIPHENOXYLATE
     Indication: DIARRHOEA
     Dosage: 1 DF, 3X/DAY, (2.5-0.025 MG)
     Route: 048
  17. LOPERAMIDE [Concomitant]
     Active Substance: LOPERAMIDE
     Dosage: 2 MG, (CAPSULES BY MOUTH EVERY DAY AND 1 TABLET AFTER EACH UNFORMED STOOL)
     Route: 048
  18. GENOTROPIN MQ [Suspect]
     Active Substance: SOMATROPIN
     Indication: HYPOPITUITARISM
     Dosage: 0.2 MG, 7 DAYS A WEEK
     Route: 058
     Dates: start: 20141115
  19. DIAZEPAM. [Concomitant]
     Active Substance: DIAZEPAM
     Dosage: 5 MG, UP TO 4X/DAY
     Route: 048
  20. HYDROCORTISONE. [Concomitant]
     Active Substance: HYDROCORTISONE
     Dosage: 10 MG, UNK, (TAKE 2 TABLETS IN THE MORNING AND 1 TABLET AT NIGHT)
     Route: 048
  21. PROMETHAZINE [Concomitant]
     Active Substance: PROMETHAZINE\PROMETHAZINE HYDROCHLORIDE
     Indication: NAUSEA
     Dosage: 25 MG, AS NEEDED (1-2 TABLETS BY MOUTH EVERY 6 HOURS AS NEEDED)
     Route: 048
  22. METHOCARBAMOL. [Concomitant]
     Active Substance: METHOCARBAMOL
     Dosage: 500 MG, AS NEEDED, (EVERY 6-8 HOURS )
     Route: 048

REACTIONS (7)
  - Death [Fatal]
  - Adrenocortical insufficiency acute [Recovered/Resolved]
  - Blood sodium decreased [Unknown]
  - Cellulitis [Unknown]
  - Cardiac disorder [Unknown]
  - Bronchitis [Unknown]
  - Rib fracture [Unknown]

NARRATIVE: CASE EVENT DATE: 201412
